FAERS Safety Report 17565230 (Version 1)
Quarter: 2020Q1

REPORT INFORMATION
  Report Type: Other
  Country: DE (occurrence: DE)
  Receive Date: 20200320
  Receipt Date: 20200320
  Transmission Date: 20200409
  Serious: Yes (Hospitalization, Other)
  Sender: FDA-Public Use
  Company Number: DE-RECORDATI RARE DISEASES-2081816

PATIENT
  Age: 7 Year
  Sex: Female
  Weight: 21.4 kg

DRUGS (7)
  1. CYSTADANE [Suspect]
     Active Substance: BETAINE
     Indication: HOMOCYSTINURIA
  2. VITAMIN B6 [Concomitant]
     Active Substance: PYRIDOXINE HYDROCHLORIDE
  3. FOLSAN [Concomitant]
     Active Substance: FOLIC ACID
  4. CYSTADANE [Suspect]
     Active Substance: BETAINE
  5. CYSTADANE [Suspect]
     Active Substance: BETAINE
  6. VITAMIN B12 [Concomitant]
     Active Substance: CYANOCOBALAMIN
  7. CYSTADANE [Suspect]
     Active Substance: BETAINE

REACTIONS (10)
  - Brain oedema [Recovered/Resolved]
  - Hypermethioninaemia [Recovered/Resolved]
  - Overdose [Recovered/Resolved]
  - Ataxia [Recovered/Resolved]
  - Inappropriate schedule of product administration [Unknown]
  - Headache [Recovered/Resolved]
  - Intracranial pressure increased [Recovered/Resolved]
  - Visual impairment [Recovered/Resolved]
  - VIth nerve disorder [Recovered/Resolved]
  - Lethargy [Recovered/Resolved]

NARRATIVE: CASE EVENT DATE: 20050815
